FAERS Safety Report 16854333 (Version 1)
Quarter: 2019Q3

REPORT INFORMATION
  Report Type: Other
  Country: GB (occurrence: GB)
  Receive Date: 20190926
  Receipt Date: 20190926
  Transmission Date: 20191005
  Serious: Yes (Other)
  Sender: FDA-Public Use
  Company Number: GB-EMCURE PHARMACEUTICALS LTD-2019-EPL-0849

PATIENT
  Age: 31 Year
  Sex: Female
  Weight: 54 kg

DRUGS (2)
  1. SERTRALINE HYDROCHLORIDE. [Suspect]
     Active Substance: SERTRALINE HYDROCHLORIDE
     Indication: PERINATAL DEPRESSION
     Dosage: 50 MILLIGRAM, RECEIVED UP TO 25-AUG-2019
     Route: 048
     Dates: start: 20181201
  2. ESCITALOPRAM [Suspect]
     Active Substance: ESCITALOPRAM OXALATE
     Indication: DEPRESSION
     Dosage: 20 MILLIGRAM, RECEIVED UP TO 01-JAN-2012
     Route: 048
     Dates: start: 20070101

REACTIONS (2)
  - Pupils unequal [Unknown]
  - Visual impairment [Unknown]

NARRATIVE: CASE EVENT DATE: 20070201
